FAERS Safety Report 24020127 (Version 1)
Quarter: 2024Q2

REPORT INFORMATION
  Report Type: Spontaneous
  Country: FR (occurrence: FR)
  Receive Date: 20240627
  Receipt Date: 20240627
  Transmission Date: 20240716
  Serious: Yes (Hospitalization, Other)
  Sender: FDA-Public Use
  Company Number: FR-009507513-2406FRA003393

PATIENT
  Age: 75 Year
  Sex: Male

DRUGS (3)
  1. CARBOPLATIN [Suspect]
     Active Substance: CARBOPLATIN
     Indication: Metastatic bronchial carcinoma
     Dosage: 4 COURSES
     Route: 065
     Dates: start: 202310, end: 202312
  2. ALIMTA [Suspect]
     Active Substance: PEMETREXED DISODIUM
     Indication: Metastatic bronchial carcinoma
     Dosage: 4 COURSES
     Route: 065
     Dates: start: 202310, end: 202312
  3. KEYTRUDA [Suspect]
     Active Substance: PEMBROLIZUMAB
     Indication: Metastatic bronchial carcinoma
     Dosage: 4 COURSES
     Route: 065
     Dates: start: 202310, end: 202312

REACTIONS (8)
  - Eyelid ptosis [Unknown]
  - Blood creatine phosphokinase abnormal [Unknown]
  - Muscle fatigue [Unknown]
  - Myalgia [Unknown]
  - Diplopia [Unknown]
  - Troponin abnormal [Unknown]
  - Myopathy [Unknown]
  - Magnetic resonance imaging abnormal [Unknown]

NARRATIVE: CASE EVENT DATE: 20240101
